FAERS Safety Report 6916008-8 (Version None)
Quarter: 2010Q3

REPORT INFORMATION
  Report Type: 
  Country: None (occurrence: None)
  Receive Date: 20100810
  Receipt Date: 20080617
  Transmission Date: 20110219
  Serious: No
  Sender: FDA-Public Use
  Company Number: US-PFIZER INC-2008051387

PATIENT
  Sex: Female

DRUGS (8)
  1. LIPITOR [Suspect]
     Route: 048
  2. ALL OTHER THERAPEUTIC PRODUCTS [Concomitant]
  3. BENAZEPRIL [Concomitant]
  4. ZETIA [Concomitant]
  5. ZOLOFT [Concomitant]
  6. ZYRTEC [Concomitant]
  7. SALBUTAMOL SULFATE [Concomitant]
  8. HYDROCHLOROTHIAZIDE [Concomitant]

REACTIONS (4)
  - HYPOAESTHESIA [None]
  - MYALGIA [None]
  - PAIN [None]
  - WRONG TECHNIQUE IN DRUG USAGE PROCESS [None]
